FAERS Safety Report 24406923 (Version 6)
Quarter: 2024Q4

REPORT INFORMATION
  Report Type: Report from Study
  Country: AU (occurrence: AU)
  Receive Date: 20241007
  Receipt Date: 20241112
  Transmission Date: 20250115
  Serious: Yes (Hospitalization, Other)
  Sender: JOHNSON AND JOHNSON
  Company Number: AU-JNJFOC-20230546747

PATIENT
  Age: 59 Year
  Sex: Female
  Weight: 82 kg

DRUGS (49)
  1. MACITENTAN [Suspect]
     Active Substance: MACITENTAN
     Indication: Pulmonary arterial hypertension
     Route: 048
  2. SELEXIPAG [Suspect]
     Active Substance: SELEXIPAG
     Indication: Pulmonary arterial hypertension
     Dosage: THERAPY START DATE 18/MAY/2023
     Route: 048
  3. SELEXIPAG [Suspect]
     Active Substance: SELEXIPAG
     Dosage: THERAPY START DATE 18/MAY/2023
     Route: 048
  4. SELEXIPAG [Suspect]
     Active Substance: SELEXIPAG
     Dosage: 01/JUN/2023
     Route: 048
  5. SELEXIPAG [Suspect]
     Active Substance: SELEXIPAG
     Dosage: THERAPY DATE: 08-SEP-2023?TAKING 800MCG TABLET X1 AND 200MCG TABLET X1
     Route: 048
  6. SELEXIPAG [Suspect]
     Active Substance: SELEXIPAG
     Dosage: 1 X 800MCG TABLET AND 2 X 200MCG TABLET
     Route: 048
  7. SELEXIPAG [Suspect]
     Active Substance: SELEXIPAG
     Route: 048
  8. SELEXIPAG [Suspect]
     Active Substance: SELEXIPAG
     Dosage: 800MCG X1 TABLET AND 200MCG X 2 TABLETS
     Route: 048
  9. SELEXIPAG [Suspect]
     Active Substance: SELEXIPAG
     Dosage: 800MCG X 1 AND 200MCG X3?THERAPY START DATE-23/OCT/2023
     Route: 048
  10. SELEXIPAG [Suspect]
     Active Substance: SELEXIPAG
     Dosage: TAKING UPTRAVI 1200MCG IN THE MORNING AND 1400MCG IN THE EVENING/  START DATE- 30/OCT/2023
     Route: 048
  11. SELEXIPAG [Suspect]
     Active Substance: SELEXIPAG
     Dosage: START DATE- 01/NOV/2023
     Route: 048
  12. SELEXIPAG [Suspect]
     Active Substance: SELEXIPAG
     Dosage: TAKING UPTRAVI 1200MCG IN THE MORNING AND 1400MCG IN THE EVENING-START DATE-05/JAN/2024
     Route: 048
     Dates: end: 20240405
  13. EPOPROSTENOL SODIUM [Suspect]
     Active Substance: EPOPROSTENOL SODIUM
     Indication: Pulmonary arterial hypertension
     Dosage: THERAPY START DATE: /APR/2024?1.5MG IN100ML INFUSED AT 3.2ML/HR
     Route: 042
  14. EPOPROSTENOL SODIUM [Suspect]
     Active Substance: EPOPROSTENOL SODIUM
     Dosage: 1.5MG IN 100ML, AND NOW HAS HER INFUSION RUNNING AT 3.5ML/HR
     Route: 042
  15. EPOPROSTENOL SODIUM [Suspect]
     Active Substance: EPOPROSTENOL SODIUM
     Dosage: 1.5MG IN 100ML, AND NOW HAS HER INFUSION RUNNING AT 3.6 ML/HR?THERAPY START DATE: 22/APR/2024
     Route: 042
  16. EPOPROSTENOL SODIUM [Suspect]
     Active Substance: EPOPROSTENOL SODIUM
     Dosage: 3.7ML PER HOUR, WITH A CONCENTRATION OF 1.5MG IN 100ML ?THERAPY START-13/MAY/2024
     Route: 042
  17. EPOPROSTENOL SODIUM [Suspect]
     Active Substance: EPOPROSTENOL SODIUM
     Dosage: 3MG IN 100ML INFUSED AT 1.9ML/HR, THERAPY START DATE:/APR/2024
     Route: 042
  18. EPOPROSTENOL SODIUM [Suspect]
     Active Substance: EPOPROSTENOL SODIUM
     Dosage: 2.1 ML/HR, USING 3MG IN 100MI?THERAPY START DATE: 19/AUG/2024
     Route: 042
  19. EPOPROSTENOL SODIUM [Suspect]
     Active Substance: EPOPROSTENOL SODIUM
     Dosage: 3MG IN 100ML INFUSED AT 1.9ML/HR, THERAPY START DATE:/APR/2024
     Route: 042
  20. EPOPROSTENOL SODIUM [Suspect]
     Active Substance: EPOPROSTENOL SODIUM
     Dosage: 1.5MG X 3 (= 4.5 MG) IN 100ML
     Route: 042
  21. EPOPROSTENOL SODIUM [Suspect]
     Active Substance: EPOPROSTENOL SODIUM
     Dosage: 1.5MG X 2 (=3MG) IN 100ML DOSE UNKNOWN
     Route: 042
  22. EPOPROSTENOL SODIUM [Suspect]
     Active Substance: EPOPROSTENOL SODIUM
     Dosage: 4.5MG IN 100ML, INFUSED AT 2.8ML PER HOUR = 27NG/KG/MIN.
     Route: 042
  23. EPOPROSTENOL SODIUM [Suspect]
     Active Substance: EPOPROSTENOL SODIUM
     Dosage: RATE TO 2.7ML/HR
     Route: 042
  24. EPOPROSTENOL SODIUM [Suspect]
     Active Substance: EPOPROSTENOL SODIUM
     Dosage: 4.5MG IN 100ML INFUSED AT 2.6ML/HR
     Route: 042
  25. AMOXICILLIN\CLAVULANATE POTASSIUM [Suspect]
     Active Substance: AMOXICILLIN\CLAVULANATE POTASSIUM
     Indication: Diverticulitis
     Dosage: THERAPY DATE 14/MAR/2023
     Route: 048
  26. AMOXICILLIN\CLAVULANATE POTASSIUM [Suspect]
     Active Substance: AMOXICILLIN\CLAVULANATE POTASSIUM
     Indication: Colonic angioectasia
  27. FUROSEMIDE [Suspect]
     Active Substance: FUROSEMIDE
     Indication: Fluid retention
     Dosage: 40MG TABLET HALF TABLET (=20MG) MANE PO (INDICATION: TO REMOVE EXCESS FLUID)
     Route: 065
  28. FUROSEMIDE [Suspect]
     Active Substance: FUROSEMIDE
     Route: 048
  29. TADALAFIL [Concomitant]
     Active Substance: TADALAFIL
     Indication: Pulmonary arterial hypertension
     Route: 048
  30. THYROXINE [Concomitant]
     Active Substance: LEVOTHYROXINE
     Route: 048
  31. THYROXINE [Concomitant]
     Active Substance: LEVOTHYROXINE
     Route: 048
     Dates: start: 2024
  32. MICARDIS [Concomitant]
     Active Substance: TELMISARTAN
     Indication: Product used for unknown indication
     Dates: end: 20240301
  33. LIPITOR [Concomitant]
     Active Substance: ATORVASTATIN CALCIUM
     Indication: Blood cholesterol
     Dosage: 20MG TABLET DAILY PO NOCTE
     Route: 048
  34. ALVESCO [Concomitant]
     Active Substance: CICLESONIDE
     Dosage: 3 PUFFS
  35. ALVESCO [Concomitant]
     Active Substance: CICLESONIDE
     Dosage: INHALE 2 PUFFS BD PRN (INDICATION: TO IMPROVE CONTROL OF AIRWAYS)
  36. TRELEGY ELLIPTA [Concomitant]
     Active Substance: FLUTICASONE FUROATE\UMECLIDINIUM BROMIDE\VILANTEROL TRIFENATATE
     Dosage: 1 PUFF IN THE MORNING
  37. VENTOLIN [Concomitant]
     Active Substance: ALBUTEROL SULFATE
  38. ELIQUIS [Concomitant]
     Active Substance: APIXABAN
     Indication: Thrombosis
     Dosage: 5MG TABLET BD PO (INDICATION: TO PREVENT BLOOD CLOTTING)
     Route: 048
     Dates: start: 20230928
  39. VITAMINS NOS [Concomitant]
     Active Substance: VITAMINS
  40. EUTROXSIG [Concomitant]
     Active Substance: LEVOTHYROXINE SODIUM
     Indication: Thyroid hormone replacement therapy
     Route: 048
  41. HYDROXOCOBALAMIN [Concomitant]
     Active Substance: HYDROXOCOBALAMIN
     Indication: Vitamin supplementation
     Dosage: 1MG/ML INJECT 1MG ONCE EVERY 3 MONTHS THROUGH GP (INDICATION: VIT B12 SUPPLEMENT)
  42. PREDNISOLONE [Concomitant]
     Active Substance: PREDNISOLONE
     Indication: Respiratory disorder
  43. PREDNISOLONE [Concomitant]
     Active Substance: PREDNISOLONE
     Dosage: THERAPY DATE : 23/APR/2024
  44. OSTEVIT D [Concomitant]
     Indication: Vitamin supplementation
  45. LASIX [Concomitant]
     Active Substance: FUROSEMIDE
  46. OXYCODONE HYDROCHLORIDE [Concomitant]
     Active Substance: OXYCODONE HYDROCHLORIDE
     Indication: Pain
  47. DIGOXIN [Concomitant]
     Active Substance: DIGOXIN
     Dosage: 2 TABLETS MANE (STRENGTH UNCONFIRMED)
  48. POTASSIUM [Concomitant]
     Active Substance: POTASSIUM
     Dosage: 1 TABLET BD PO (STRENGTH UNCONFIRMED)
     Route: 048
  49. PANTOPRAZOLE SODIUM [Concomitant]
     Active Substance: PANTOPRAZOLE SODIUM
     Dosage: TABLET DAILY PO (STRENGTH UNCONFIRMED)
     Route: 048

REACTIONS (59)
  - Diverticulitis [Recovered/Resolved]
  - Colonic angioectasia [Recovering/Resolving]
  - Drug hypersensitivity [Recovering/Resolving]
  - Pulmonary arterial hypertension [Unknown]
  - Hypergammaglobulinaemia benign monoclonal [Unknown]
  - Monoclonal gammopathy [Unknown]
  - Colitis [Unknown]
  - Pericardial effusion [Unknown]
  - Oxygen saturation decreased [Recovered/Resolved]
  - Oxygen therapy [Unknown]
  - Carditis [Not Recovered/Not Resolved]
  - Hospitalisation [Unknown]
  - COVID-19 [Recovered/Resolved]
  - Pain in jaw [Recovered/Resolved with Sequelae]
  - Flushing [Recovered/Resolved]
  - Walking distance test abnormal [Recovering/Resolving]
  - Nausea [Recovered/Resolved]
  - Diarrhoea [Recovering/Resolving]
  - Toothache [Not Recovered/Not Resolved]
  - Headache [Recovering/Resolving]
  - Back pain [Recovered/Resolved with Sequelae]
  - Abdominal pain [Recovered/Resolved]
  - Dizziness [Recovered/Resolved]
  - Bone pain [Recovered/Resolved with Sequelae]
  - Respiratory tract infection [Recovering/Resolving]
  - Poor quality sleep [Recovered/Resolved]
  - Biopsy bone [Unknown]
  - Nasopharyngitis [Not Recovered/Not Resolved]
  - Gastrooesophageal reflux disease [Recovered/Resolved]
  - Gastrointestinal pain [Not Recovered/Not Resolved]
  - Malaise [Recovered/Resolved]
  - Gait disturbance [Not Recovered/Not Resolved]
  - Epistaxis [Recovered/Resolved]
  - Abdominal pain upper [Recovered/Resolved]
  - Hepatic cyst [Unknown]
  - Proctitis [Unknown]
  - Dyspnoea exertional [Unknown]
  - Insomnia [Recovered/Resolved]
  - Hypotension [Recovered/Resolved]
  - Drug intolerance [Not Recovered/Not Resolved]
  - Respiratory rate increased [Recovered/Resolved]
  - Emotional distress [Recovered/Resolved]
  - Balance disorder [Recovered/Resolved]
  - Pruritus [Recovered/Resolved]
  - Skin discolouration [Unknown]
  - Skin weeping [Unknown]
  - Skin laceration [Unknown]
  - Heart rate increased [Recovered/Resolved]
  - Dehydration [Unknown]
  - Depressed mood [Recovered/Resolved]
  - Urinary tract infection [Recovered/Resolved]
  - Asthma [Unknown]
  - Fluid retention [Recovered/Resolved]
  - Pain [Recovered/Resolved]
  - Weight decreased [Unknown]
  - Fatigue [Unknown]
  - Periarthritis [Unknown]
  - Rash erythematous [Recovering/Resolving]
  - Vomiting [Unknown]

NARRATIVE: CASE EVENT DATE: 20221225
